FAERS Safety Report 5630986-9 (Version None)
Quarter: 2008Q1

REPORT INFORMATION
  Report Type: 
  Country: None (occurrence: None)
  Receive Date: 20080214
  Receipt Date: 20080204
  Transmission Date: 20080703
  Serious: Yes (Death)
  Sender: FDA-Public Use
  Company Number: 2008-01134

PATIENT
  Age: 41 Year
  Sex: Male

DRUGS (4)
  1. MORPHINE SULFATE [Suspect]
  2. FIORICET [Suspect]
  3. DIPHENHYDRAMINE HCL [Suspect]
  4. METHADONE HCL [Suspect]

REACTIONS (1)
  - DEATH [None]
